FAERS Safety Report 6848111-5 (Version None)
Quarter: 2010Q3

REPORT INFORMATION
  Report Type: 
  Country: None (occurrence: None)
  Receive Date: 20100716
  Receipt Date: 20100709
  Transmission Date: 20110219
  Serious: Yes (Hospitalization)
  Sender: FDA-Public Use
  Company Number: A0869483A

PATIENT
  Age: 68 Year
  Sex: Male

DRUGS (3)
  1. COREG CR [Suspect]
     Indication: IMPLANTABLE DEFIBRILLATOR INSERTION
     Dosage: 1TAB PER DAY
     Route: 048
     Dates: start: 20100629, end: 20100630
  2. DIOVAN [Concomitant]
  3. ASPIRIN [Concomitant]

REACTIONS (2)
  - BLOOD PRESSURE DECREASED [None]
  - DEVICE MALFUNCTION [None]
